FAERS Safety Report 10071006 (Version 2)
Quarter: 2014Q3

REPORT INFORMATION
  Report Type: Spontaneous
  Country: US (occurrence: US)
  Receive Date: 20140410
  Receipt Date: 20140805
  Transmission Date: 20150326
  Serious: Yes (Death, Hospitalization, Other)
  Sender: FDA-Public Use
  Company Number: US-009507513-1404USA005922

PATIENT
  Sex: Female
  Weight: 65.94 kg

DRUGS (1)
  1. JANUVIA [Suspect]
     Active Substance: SITAGLIPTIN PHOSPHATE
     Indication: TYPE 2 DIABETES MELLITUS
     Dosage: 100 MG, QD
     Route: 048
     Dates: start: 20090527

REACTIONS (14)
  - Cerebrovascular accident [Unknown]
  - Adenocarcinoma pancreas [Unknown]
  - Fall [Unknown]
  - Clavicle fracture [Unknown]
  - Cerebrovascular accident [Unknown]
  - Spondylolisthesis [Unknown]
  - Blindness [Unknown]
  - Death [Fatal]
  - Pulmonary mass [Unknown]
  - Spinal compression fracture [Unknown]
  - Cholelithiasis [Unknown]
  - Immune thrombocytopenic purpura [Unknown]
  - Rib fracture [Unknown]
  - Hepatic steatosis [Unknown]

NARRATIVE: CASE EVENT DATE: 2010
